FAERS Safety Report 5792845-0 (Version None)
Quarter: 2008Q2

REPORT INFORMATION
  Report Type: 
  Country: None (occurrence: None)
  Receive Date: 20080624
  Receipt Date: 20080616
  Transmission Date: 20081010
  Serious: Yes (Other)
  Sender: FDA-Public Use
  Company Number: 2008BI003567

PATIENT
  Age: 30 Year
  Sex: Female
  Weight: 91.6266 kg

DRUGS (10)
  1. AVONEX [Suspect]
     Indication: MULTIPLE SCLEROSIS
     Dosage: 30 UG;QW;IM
     Route: 030
     Dates: end: 20071218
  2. ADVAIR DISKUS 100/50 [Concomitant]
  3. SINGULAIR [Concomitant]
  4. DETROL LA [Concomitant]
  5. ALLEGRA [Concomitant]
  6. METFORMIN HCL [Concomitant]
  7. ZOLOFT [Concomitant]
  8. ALBUTEROL [Concomitant]
  9. ALBUTEROL SULFATE [Concomitant]
  10. VITAMIN TAB [Concomitant]

REACTIONS (7)
  - ABDOMINAL PAIN [None]
  - CAESAREAN SECTION [None]
  - CHORIOAMNIONITIS [None]
  - DRUG EXPOSURE DURING PREGNANCY [None]
  - DYSPEPSIA [None]
  - GASTROINTESTINAL INFECTION [None]
  - PREGNANCY [None]
